FAERS Safety Report 6062197-X (Version None)
Quarter: 2009Q1

REPORT INFORMATION
  Report Type: 
  Country: None (occurrence: None)
  Receive Date: 20090203
  Receipt Date: 20090121
  Transmission Date: 20090719
  Serious: Yes (Death)
  Sender: FDA-Public Use
  Company Number: US-JNJFOC-20090106078

PATIENT
  Sex: Male
  Weight: 74.84 kg

DRUGS (10)
  1. DURAGESIC-100 [Suspect]
     Indication: DRUG USE FOR UNKNOWN INDICATION
     Route: 062
  2. MORPHINE [Suspect]
     Indication: DRUG USE FOR UNKNOWN INDICATION
     Route: 065
  3. COCAINE [Suspect]
     Indication: DRUG USE FOR UNKNOWN INDICATION
     Route: 065
  4. MS CONTIN [Concomitant]
     Route: 065
  5. COLACE [Concomitant]
     Route: 065
  6. PHENERGAN HCL [Concomitant]
     Route: 065
  7. TAGAMET [Concomitant]
     Route: 065
  8. LORABID [Concomitant]
     Route: 065
  9. DOXEPIN HCL [Concomitant]
     Route: 065
  10. XANAX [Concomitant]
     Route: 065

REACTIONS (3)
  - ACQUIRED IMMUNODEFICIENCY SYNDROME [None]
  - ADENOCARCINOMA [None]
  - DRUG TOXICITY [None]
